FAERS Safety Report 8444682-6 (Version None)
Quarter: 2012Q2

REPORT INFORMATION
  Report Type: 
  Country: None (occurrence: None)
  Receive Date: 20120618
  Receipt Date: 20120612
  Transmission Date: 20120825
  Serious: Yes (Death, Hospitalization)
  Sender: FDA-Public Use
  Company Number: CO-PFIZER INC-2012083205

PATIENT
  Age: 77 Year
  Sex: Male

DRUGS (5)
  1. AMLODIPINE BESILATE [Concomitant]
     Indication: HYPERTENSION
     Dosage: 5 MG, TWICE DAILY
     Route: 048
  2. ASPIRIN [Concomitant]
     Indication: HYPERTENSION
     Dosage: 100 MG, ONCE DAILY
     Route: 048
  3. METOPROLOL TARTRATE [Concomitant]
     Indication: HYPERTENSION
     Dosage: 100 MG, THREE TIMES DAILY
     Route: 048
  4. LOSARTAN [Concomitant]
     Indication: HYPERTENSION
     Dosage: 50 MG, TWICE DAILY
  5. LIPITOR [Suspect]
     Indication: HYPERTENSION
     Dosage: 10 MG, ONCE DAILY
     Route: 048
     Dates: start: 20080103

REACTIONS (1)
  - ASPHYXIA [None]
